FAERS Safety Report 9070865 (Version 2)
Quarter: 2013Q1

REPORT INFORMATION
  Report Type: Spontaneous
  Country: US (occurrence: US)
  Receive Date: 20130129
  Receipt Date: 20130214
  Transmission Date: 20140127
  Serious: Yes (Other)
  Sender: FDA-Public Use
  Company Number: PHEH2013US002315

PATIENT
  Sex: 0

DRUGS (1)
  1. GILENYA [Suspect]

REACTIONS (1)
  - Central nervous system lesion [Unknown]
